FAERS Safety Report 6148917-4 (Version None)
Quarter: 2009Q2

REPORT INFORMATION
  Report Type: 
  Country: None (occurrence: None)
  Receive Date: 20090407
  Receipt Date: 20090324
  Transmission Date: 20091009
  Serious: Yes (Hospitalization)
  Sender: FDA-Public Use
  Company Number: 232394K09USA

PATIENT
  Age: 71 Year
  Sex: Male
  Weight: 113 kg

DRUGS (8)
  1. REBIF [Suspect]
     Indication: OFF LABEL USE
     Dosage: 44 MCG, 3 IN 1 WEEKS, SUBCUTANEOUS
     Route: 058
     Dates: start: 20080207
  2. BACLOFEN [Concomitant]
  3. ASPIRIN [Concomitant]
  4. OXYBUTYNIN CHLORIDE [Concomitant]
  5. TERAZOSIN HCL [Concomitant]
  6. BISACODYL (BISACODYL) [Concomitant]
  7. MIRALAX [Concomitant]
  8. HYDROCHLOROTHIAZIDE [Concomitant]

REACTIONS (4)
  - BRONCHITIS [None]
  - OFF LABEL USE [None]
  - PAIN [None]
  - URINARY TRACT INFECTION [None]
